FAERS Safety Report 10678267 (Version 1)
Quarter: 2014Q4

REPORT INFORMATION
  Report Type: Spontaneous
  Country: US (occurrence: None)
  Receive Date: 20141223
  Receipt Date: 20141223
  Transmission Date: 20150529
  Serious: Yes (Hospitalization)
  Sender: FDA-Public Use
  Company Number: 2515444201400012

PATIENT
  Age: 6 Year
  Sex: Male

DRUGS (1)
  1. BANANA BOAT ULTRAMIST SPORT PERFORMANCE SPF 50 [Suspect]
     Active Substance: AVOBENZONE\HOMOSALATE\OCTINOXATE\OCTISALATE\OCTOCRYLENE\OXYBENZONE
     Indication: PROPHYLAXIS AGAINST SOLAR RADIATION
     Dosage: TOPICAL, NO DOSAGE LIMIT
     Route: 061
     Dates: start: 20140522

REACTIONS (3)
  - Burns third degree [None]
  - Product quality issue [None]
  - Wrong technique in drug usage process [None]
